FAERS Safety Report 16367875 (Version 1)
Quarter: 2019Q2

REPORT INFORMATION
  Report Type: Spontaneous
  Country: US (occurrence: US)
  Receive Date: 20190529
  Receipt Date: 20190529
  Transmission Date: 20190711
  Serious: Yes (Other)
  Sender: FDA-Public Use
  Company Number: US-PFIZER INC-2019225527

PATIENT
  Sex: Female
  Weight: 61.23 kg

DRUGS (1)
  1. PROTONIX [Suspect]
     Active Substance: PANTOPRAZOLE SODIUM
     Indication: GASTRIC DISORDER
     Dosage: 40 MG, 1X/DAY

REACTIONS (4)
  - Cervix carcinoma [Unknown]
  - Leukaemia [Unknown]
  - Cholecystitis infective [Unknown]
  - Thyroid cancer [Unknown]
